FAERS Safety Report 10473915 (Version 1)
Quarter: 2014Q3

REPORT INFORMATION
  Report Type: Report from Study
  Country: US (occurrence: US)
  Receive Date: 20140924
  Receipt Date: 20140924
  Transmission Date: 20150326
  Serious: Yes (Disabling, Other)
  Sender: FDA-Public Use
  Company Number: PHEH2014US018723

PATIENT
  Sex: Female

DRUGS (19)
  1. CYCLOBENZAPRINE [Concomitant]
     Active Substance: CYCLOBENZAPRINE
     Dosage: UNK UKN, UNK
  2. PANTOPRAZOLE [Concomitant]
     Active Substance: PANTOPRAZOLE SODIUM
     Dosage: UNK UKN, UNK
  3. PLAQUENIL [Concomitant]
     Active Substance: HYDROXYCHLOROQUINE SULFATE
     Dosage: UNK UKN, UNK
  4. BENLYSTA [Concomitant]
     Active Substance: BELIMUMAB
     Indication: SYSTEMIC LUPUS ERYTHEMATOSUS
     Dosage: UNK UKN, UNK
  5. MYCOPHENOLIC ACID [Suspect]
     Active Substance: MYCOPHENOLIC ACID
     Indication: SYSTEMIC LUPUS ERYTHEMATOSUS
     Dosage: 360 MG, BID
  6. FOLIC ACID. [Concomitant]
     Active Substance: FOLIC ACID
     Dosage: UNK UKN, UNK
  7. MYFORTIC [Suspect]
     Active Substance: MYCOPHENOLATE SODIUM
     Dosage: 3 DF, TID
     Route: 048
  8. MYFORTIC [Suspect]
     Active Substance: MYCOPHENOLATE SODIUM
     Dosage: 360 MG 03 TABLETS TWICE A DAY
  9. MULTI VITAMIN [Concomitant]
     Active Substance: VITAMINS
     Dosage: UNK UKN, UNK
  10. MYFORTIC [Suspect]
     Active Substance: MYCOPHENOLATE SODIUM
     Dosage: 360 MG, 02 TABLETS TWICE A DAY
  11. CITRACAL + D [Concomitant]
     Active Substance: CALCIUM CITRATE\VITAMIN D
     Dosage: UNK UKN, UNK
  12. HYDROCODONE [Concomitant]
     Active Substance: HYDROCODONE
     Dosage: UNK UKN, UNK
  13. COD-LIVER OIL [Concomitant]
     Active Substance: FISH OIL
     Dosage: UNK UKN, UNK
  14. MYFORTIC [Suspect]
     Active Substance: MYCOPHENOLATE SODIUM
     Indication: SYSTEMIC LUPUS ERYTHEMATOSUS
     Dosage: 1080 MG, BID
     Route: 048
  15. LEVOTHYROXINE [Concomitant]
     Active Substance: LEVOTHYROXINE
     Dosage: UNK UKN, UNK
  16. MYFORTIC [Suspect]
     Active Substance: MYCOPHENOLATE SODIUM
     Indication: OFF LABEL USE
     Dosage: 2 DF, BID
     Route: 048
  17. MAGNESIUM [Concomitant]
     Active Substance: MAGNESIUM
     Dosage: UNK UKN, UNK
  18. PREDNISONE. [Concomitant]
     Active Substance: PREDNISONE
     Dosage: UNK UKN, UNK
  19. METHOTREXATE [Concomitant]
     Active Substance: METHOTREXATE
     Dosage: UNK UKN, UNK

REACTIONS (3)
  - Protein urine present [Unknown]
  - Systemic lupus erythematosus [Unknown]
  - Renal disorder [Unknown]
